FAERS Safety Report 10588588 (Version 1)
Quarter: 2014Q4

REPORT INFORMATION
  Report Type: Spontaneous
  Country: GB (occurrence: GB)
  Receive Date: 20141117
  Receipt Date: 20141117
  Transmission Date: 20150529
  Serious: Yes (Death, Hospitalization)
  Sender: FDA-Public Use
  Company Number: GB-SA-2014SA154932

PATIENT
  Age: 79 Year
  Sex: Female

DRUGS (1)
  1. ENOXAPARIN SODIUM. [Suspect]
     Active Substance: ENOXAPARIN SODIUM
     Indication: PROPHYLAXIS
     Route: 065
     Dates: start: 20131015

REACTIONS (3)
  - Fluid overload [Not Recovered/Not Resolved]
  - Renal haematoma [Fatal]
  - Haemoglobin decreased [Not Recovered/Not Resolved]
